FAERS Safety Report 4293836-1 (Version None)
Quarter: 2004Q1

REPORT INFORMATION
  Report Type: 
  Country: None (occurrence: None)
  Receive Date: 20040212
  Receipt Date: 20040205
  Transmission Date: 20041129
  Serious: Yes (Death)
  Sender: FDA-Public Use
  Company Number: PHRM2004FR00766

PATIENT
  Age: 70 Year
  Sex: Male

DRUGS (1)
  1. NEOSYNEPHRINE 10% (NVO) [Suspect]
     Indication: ANGIOGRAM RETINA
     Route: 047
     Dates: start: 20040130, end: 20040130

REACTIONS (2)
  - SHOCK [None]
  - VENTRICULAR FIBRILLATION [None]
